FAERS Safety Report 24613448 (Version 1)
Quarter: 2024Q4

REPORT INFORMATION
  Report Type: Spontaneous
  Country: BY (occurrence: BY)
  Receive Date: 20241113
  Receipt Date: 20241113
  Transmission Date: 20250114
  Serious: Yes (Death, Hospitalization)
  Sender: JOHNSON AND JOHNSON
  Company Number: BY-JNJFOC-20241127073

PATIENT
  Sex: Male
  Weight: 36 kg

DRUGS (11)
  1. SIRTURO [Suspect]
     Active Substance: BEDAQUILINE FUMARATE
     Indication: Product used for unknown indication
     Route: 048
     Dates: start: 20230819
  2. SIRTURO [Suspect]
     Active Substance: BEDAQUILINE FUMARATE
     Route: 048
     Dates: end: 20231201
  3. PRETOMANID [Suspect]
     Active Substance: PRETOMANID
     Indication: Product used for unknown indication
     Route: 048
     Dates: start: 20230819, end: 20231201
  4. LINEZOLID [Suspect]
     Active Substance: LINEZOLID
     Indication: Product used for unknown indication
     Dosage: FOR 112 DOSES
     Route: 048
     Dates: start: 20230819
  5. LINEZOLID [Suspect]
     Active Substance: LINEZOLID
     Route: 048
     Dates: end: 20231201
  6. CLOFAZIMINE [Suspect]
     Active Substance: CLOFAZIMINE
     Indication: Product used for unknown indication
     Route: 048
     Dates: start: 20230819
  7. TAMSULOSIN [Concomitant]
     Active Substance: TAMSULOSIN
     Indication: Benign prostatic hyperplasia
     Route: 048
     Dates: start: 20231127, end: 20231210
  8. FENOTEROL HYDROBROMIDE\IPRATROPIUM BROMIDE [Concomitant]
     Active Substance: FENOTEROL HYDROBROMIDE\IPRATROPIUM BROMIDE
     Indication: Chronic obstructive pulmonary disease
     Dosage: 120MCG+300MCG
     Route: 065
     Dates: start: 20230921, end: 20231210
  9. FORMOTEROL [Concomitant]
     Active Substance: FORMOTEROL
     Indication: Chronic obstructive pulmonary disease
     Route: 048
     Dates: start: 20231116, end: 20231210
  10. ALBUTEROL [Concomitant]
     Active Substance: ALBUTEROL
     Indication: Chronic obstructive pulmonary disease
     Route: 065
     Dates: start: 20230614, end: 20230907
  11. QUETIAPINE [Concomitant]
     Active Substance: QUETIAPINE
     Indication: Personality change due to a general medical condition
     Route: 048
     Dates: start: 20230822, end: 20231210

REACTIONS (1)
  - Respiratory failure [Fatal]

NARRATIVE: CASE EVENT DATE: 20231201
